FAERS Safety Report 19897866 (Version 4)
Quarter: 2022Q1

REPORT INFORMATION
  Report Type: Spontaneous
  Country: JP (occurrence: JP)
  Receive Date: 20210930
  Receipt Date: 20220204
  Transmission Date: 20220424
  Serious: Yes (Other)
  Sender: FDA-Public Use
  Company Number: JP-UNITED THERAPEUTICS-UNT-2017-013337

PATIENT
  Age: 54 Year
  Sex: Female
  Weight: 76 kg

DRUGS (18)
  1. REMODULIN [Suspect]
     Active Substance: TREPROSTINIL
     Indication: Pulmonary arterial hypertension
     Dosage: 0.010 ?G/KG, CONTINUING
     Route: 058
     Dates: start: 20170906, end: 201709
  2. REMODULIN [Suspect]
     Active Substance: TREPROSTINIL
     Dosage: UNK ,CONTINUING (AT DOSING RATE OF 3.5 MCL/H)
     Route: 058
     Dates: start: 20170908, end: 201709
  3. REMODULIN [Suspect]
     Active Substance: TREPROSTINIL
     Dosage: UNK,CONTINUING (AT DOSING RATE OF 9 MCL/H)
     Route: 058
     Dates: start: 20170911, end: 201709
  4. REMODULIN [Suspect]
     Active Substance: TREPROSTINIL
     Dosage: UNK, CONTINUING (AT DOSING RATE OF 18.5 MCL/H)
     Route: 058
     Dates: start: 20170915, end: 201709
  5. REMODULIN [Suspect]
     Active Substance: TREPROSTINIL
     Dosage: UNK, CONTINUING (AT DOSING RATE OF 27.5 MCL/H USING 100 MG FORMULATION)
     Route: 058
     Dates: start: 20170930, end: 2017
  6. REMODULIN [Suspect]
     Active Substance: TREPROSTINIL
     Dosage: 0.030 ?G/KG, CONTINUING
     Route: 058
     Dates: start: 2017, end: 201710
  7. REMODULIN [Suspect]
     Active Substance: TREPROSTINIL
     Dosage: 0.040 ?G/KG, CONTINUING
     Route: 058
     Dates: start: 20171013, end: 201710
  8. REMODULIN [Suspect]
     Active Substance: TREPROSTINIL
     Dosage: 0.031 ?G/KG, CONTINUING
     Route: 058
     Dates: start: 201710, end: 2017
  9. REMODULIN [Suspect]
     Active Substance: TREPROSTINIL
     Dosage: 0.032 ?G/KG, CONTINUING
     Route: 058
     Dates: start: 2017
  10. REMODULIN [Suspect]
     Active Substance: TREPROSTINIL
     Dosage: 0.060 ?G/KG, CONTINUING
     Route: 058
  11. OPSUMIT [Concomitant]
     Active Substance: MACITENTAN
     Indication: Pulmonary arterial hypertension
     Dosage: UNK
     Route: 048
     Dates: start: 201606
  12. ADCIRCA [Concomitant]
     Active Substance: TADALAFIL
     Indication: Pulmonary arterial hypertension
     Dosage: UNK
     Route: 048
     Dates: start: 201606
  13. UPTRAVI [Concomitant]
     Active Substance: SELEXIPAG
     Indication: Pulmonary arterial hypertension
     Dosage: UNK
     Route: 048
     Dates: start: 201706, end: 20170919
  14. AZOSEMIDE [Concomitant]
     Active Substance: AZOSEMIDE
     Indication: Pulmonary arterial hypertension
     Dosage: UNK
     Route: 048
  15. SPIRONOLACTONE [Concomitant]
     Active Substance: SPIRONOLACTONE
     Indication: Pulmonary arterial hypertension
     Dosage: UNK
     Route: 048
  16. URSO [Concomitant]
     Active Substance: URSODIOL
     Indication: Product used for unknown indication
     Dosage: UNK
     Route: 048
  17. NEXIUM [Concomitant]
     Active Substance: ESOMEPRAZOLE MAGNESIUM
     Indication: Pulmonary arterial hypertension
     Dosage: UNK
     Route: 048
  18. FEBUXOSTAT [Concomitant]
     Active Substance: FEBUXOSTAT
     Indication: Product used for unknown indication
     Dosage: UNK
     Route: 048

REACTIONS (12)
  - Hyperthyroidism [Unknown]
  - Injection site pain [Recovered/Resolved]
  - Injection site induration [Unknown]
  - Flushing [Not Recovered/Not Resolved]
  - Injection site erythema [Recovering/Resolving]
  - Injection site warmth [Recovering/Resolving]
  - Malaise [Not Recovered/Not Resolved]
  - Weight increased [Unknown]
  - Injection site cellulitis [Recovered/Resolved]
  - Tonsillitis [Recovering/Resolving]
  - Device alarm issue [Recovered/Resolved]
  - Constipation [Unknown]

NARRATIVE: CASE EVENT DATE: 20170901
